FAERS Safety Report 8669282 (Version 2)
Quarter: 2012Q4

REPORT INFORMATION
  Report Type: Spontaneous
  Country: US (occurrence: None)
  Receive Date: 20120629
  Receipt Date: 20120821
  Transmission Date: 20130627
  Serious: Yes (Hospitalization)
  Sender: FDA-Public Use
  Company Number: ACO_30821_2012

PATIENT
  Age: 60 Year
  Sex: Female

DRUGS (5)
  1. AMPYRA [Suspect]
     Indication: PRODUCT USED FOR UNKNOWN INDICATION
     Dosage: 10 MG, Q 12 HRS, ORAL
     Route: 048
     Dates: start: 20120206
  2. BETASERON [Suspect]
     Indication: MULTIPLE SCLEROSIS
     Dosage: qod, subcutaneous
     Route: 058
  3. PROZAC [Concomitant]
  4. BACLOFEN [Concomitant]
  5. GABAPENTIN [Concomitant]

REACTIONS (4)
  - Urinary tract infection [None]
  - Cholelithiasis [None]
  - Hepatic function abnormal [None]
  - Cholecystitis [None]
